FAERS Safety Report 8167395-7 (Version None)
Quarter: 2012Q1

REPORT INFORMATION
  Report Type: 
  Country: None (occurrence: None)
  Receive Date: 20120227
  Receipt Date: 20120221
  Transmission Date: 20120608
  Serious: Yes (Other)
  Sender: FDA-Public Use
  Company Number: SE-PFIZER INC-2012013770

PATIENT
  Age: 50 Year
  Sex: Female
  Weight: 86 kg

DRUGS (16)
  1. SOMATROPIN [Suspect]
     Dosage: 0.2 MG, 1X/DAY
     Dates: start: 20110125
  2. FERROUS SULFATE TAB [Concomitant]
     Indication: IRON DEFICIENCY
     Dosage: UNK
     Route: 048
     Dates: start: 20061114
  3. BROMOCRIPTINE MESYLATE [Concomitant]
     Dosage: UNK
     Dates: start: 20071019
  4. HYDROCORTISONE [Concomitant]
     Indication: SECONDARY ADRENOCORTICAL INSUFFICIENCY
     Dosage: UNK
     Dates: start: 20071015
  5. SOMATROPIN [Suspect]
     Indication: HYPOPITUITARISM
     Dosage: 0.1 MG DAILY, 7 INJECTIONS/WEEK
     Dates: start: 20000704
  6. SOMATROPIN [Suspect]
     Dosage: 0.4 MG, 1X/DAY
     Dates: start: 20110614
  7. FERROUS SULFATE TAB [Concomitant]
     Dosage: UNK
     Route: 048
     Dates: start: 20100310
  8. MINIRIN [Concomitant]
     Dosage: UNK
     Route: 048
     Dates: start: 20081219
  9. SOMATROPIN [Suspect]
     Dosage: 0.1 MG DAILY
     Dates: start: 20101110
  10. SOMATROPIN [Suspect]
     Dosage: 0.3 MG, 1X/DAY
     Dates: start: 20110215
  11. LEVOTHYROXINE SODIUM [Concomitant]
     Indication: BLOOD THYROID STIMULATING HORMONE DECREASED
     Dosage: UNK
     Route: 048
     Dates: start: 19951128
  12. LEVOTHYROXINE SODIUM [Concomitant]
     Indication: PRIMARY HYPOTHYROIDISM
     Dosage: UNK
     Route: 048
     Dates: start: 20090408
  13. FOLIC ACID [Concomitant]
     Indication: VITAMIN B6 DEFICIENCY
     Dosage: UNK
     Dates: start: 20061114
  14. BROMOCRIPTINE MESYLATE [Concomitant]
     Indication: HYPERPROLACTINAEMIA
     Dosage: UNK
     Route: 048
     Dates: start: 20051129
  15. MINIRIN [Concomitant]
     Indication: HYPOTHALAMO-PITUITARY DISORDER
     Dosage: UNK
     Dates: start: 19960603
  16. FOLIC ACID [Concomitant]
     Dosage: UNK
     Dates: start: 20070110

REACTIONS (1)
  - PITUITARY TUMOUR BENIGN [None]
